FAERS Safety Report 5258061-6 (Version None)
Quarter: 2007Q1

REPORT INFORMATION
  Report Type: 
  Country: None (occurrence: None)
  Receive Date: 20070307
  Receipt Date: 20070223
  Transmission Date: 20070707
  Serious: Yes (Hospitalization)
  Sender: FDA-Public Use
  Company Number: GB-PFIZER INC-2006071469

PATIENT
  Sex: Female

DRUGS (4)
  1. SU-011,248 [Suspect]
     Indication: RENAL CELL CARCINOMA STAGE UNSPECIFIED
     Route: 048
  2. TRANDOLAPRIL [Concomitant]
     Route: 048
  3. SALBUTAMOL [Concomitant]
     Route: 055
  4. ACETAMINOPHEN [Concomitant]
     Route: 048

REACTIONS (8)
  - BALANCE DISORDER [None]
  - CONFUSIONAL STATE [None]
  - DEHYDRATION [None]
  - DISORIENTATION [None]
  - FALL [None]
  - PYREXIA [None]
  - SYNCOPE [None]
  - VOMITING [None]
